FAERS Safety Report 5280681-3 (Version None)
Quarter: 2007Q1

REPORT INFORMATION
  Report Type: 
  Country: None (occurrence: None)
  Receive Date: 20061221
  Receipt Date: 20060821
  Transmission Date: 20070707
  Serious: No
  Sender: FDA-Public Use
  Company Number: US-CVT-061771

PATIENT
  Age: 69 Year
  Sex: Female

DRUGS (5)
  1. RANEXA [Suspect]
     Indication: ANGINA PECTORIS
     Dosage: 500 MG, QD, ORAL
     Route: 048
     Dates: start: 20060819, end: 20060801
  2. ALTACE [Concomitant]
  3. COREG [Concomitant]
  4. PLAVIX [Concomitant]
  5. CHOLESTEROL - AND TRIGLYCERIDE REDUCERS) [Concomitant]

REACTIONS (5)
  - ASTHENIA [None]
  - DIZZINESS [None]
  - FATIGUE [None]
  - MALAISE [None]
  - NAUSEA [None]
